FAERS Safety Report 8738188 (Version 3)
Quarter: 2015Q3

REPORT INFORMATION
  Report Type: Spontaneous
  Country: US (occurrence: US)
  Receive Date: 20120823
  Receipt Date: 20150817
  Transmission Date: 20151125
  Serious: Yes (Hospitalization, Other)
  Sender: FDA-Public Use
  Company Number: US-009507513-1208USA005650

PATIENT
  Sex: Female

DRUGS (2)
  1. ALENDRONATE SODIUM. [Suspect]
     Active Substance: ALENDRONATE SODIUM
     Indication: BONE DENSITY DECREASED
     Dosage: 70 MG, UNKNOWN
     Route: 048
     Dates: start: 200806, end: 2009
  2. FOSAMAX [Suspect]
     Active Substance: ALENDRONATE SODIUM
     Indication: BONE DENSITY DECREASED
     Dosage: 70 MG, UNKNOWN
     Route: 048
     Dates: start: 2002, end: 2008

REACTIONS (12)
  - Impaired healing [Unknown]
  - Hyperlipidaemia [Unknown]
  - Pancreatitis acute [Unknown]
  - Femur fracture [Unknown]
  - Cataract [Unknown]
  - Osteoporosis [Unknown]
  - Nausea [Unknown]
  - Type 2 diabetes mellitus [Unknown]
  - Hypertension [Unknown]
  - Fall [Unknown]
  - Haemorrhagic anaemia [Unknown]
  - Uterine disorder [Unknown]

NARRATIVE: CASE EVENT DATE: 2003
